FAERS Safety Report 25095441 (Version 1)
Quarter: 2025Q1

REPORT INFORMATION
  Report Type: Report from Study
  Country: US (occurrence: US)
  Receive Date: 20250319
  Receipt Date: 20250319
  Transmission Date: 20250408
  Serious: Yes (Other)
  Sender: NOVARTIS
  Company Number: US-002147023-NVSC2025US001018

PATIENT
  Sex: Female

DRUGS (1)
  1. KESIMPTA [Suspect]
     Active Substance: OFATUMUMAB
     Indication: Relapsing multiple sclerosis
     Route: 065
     Dates: start: 20241221

REACTIONS (6)
  - Hypothyroidism [Unknown]
  - Weight loss poor [Unknown]
  - Swelling [Unknown]
  - Decreased appetite [Unknown]
  - Mental disorder [Unknown]
  - Blood cholesterol increased [Unknown]
